FAERS Safety Report 8022579-3 (Version None)
Quarter: 2012Q1

REPORT INFORMATION
  Report Type: 
  Country: None (occurrence: None)
  Receive Date: 20120104
  Receipt Date: 20120103
  Transmission Date: 20120608
  Serious: Yes (Hospitalization)
  Sender: FDA-Public Use
  Company Number: US-GLAXOSMITHKLINE-A0946822A

PATIENT
  Age: 63 Year
  Sex: Female
  Weight: 50 kg

DRUGS (15)
  1. VITAMIN D [Concomitant]
  2. XANAX [Concomitant]
  3. POTASSIUM CHLORIDE [Concomitant]
  4. LASIX [Concomitant]
  5. PROVENTIL-HFA [Concomitant]
  6. GABAPENTIN [Concomitant]
  7. WELLBUTRIN SR [Concomitant]
  8. COUMADIN [Concomitant]
  9. SPIRIVA [Concomitant]
  10. IMODIUM [Concomitant]
  11. PROMETHAZINE [Concomitant]
  12. ALENDRONATE SODIUM [Concomitant]
  13. SYMBICORT [Concomitant]
  14. DIGOXIN [Concomitant]
  15. FLOLAN [Suspect]
     Indication: PULMONARY ARTERIAL HYPERTENSION
     Dosage: 68NGKM UNKNOWN
     Route: 065
     Dates: start: 20100527

REACTIONS (3)
  - OEDEMA PERIPHERAL [None]
  - PAIN [None]
  - PNEUMONIA [None]
